FAERS Safety Report 9856957 (Version 1)
Quarter: 2014Q1

REPORT INFORMATION
  Report Type: Spontaneous
  Country: GB (occurrence: GB)
  Receive Date: 20140130
  Receipt Date: 20140130
  Transmission Date: 20141002
  Serious: Yes (Other)
  Sender: FDA-Public Use
  Company Number: GB-TEVA-457510ISR

PATIENT
  Age: 46 Year
  Sex: Male
  Weight: 99 kg

DRUGS (7)
  1. FEXOFENADINE [Suspect]
     Dates: start: 20130902
  2. PRIADEL [Concomitant]
     Dates: start: 20130902
  3. OMEPRAZOLE [Concomitant]
     Dates: start: 20130902
  4. FLUOXETINE [Concomitant]
     Dates: start: 20130902
  5. RAMIPRIL [Concomitant]
     Dates: start: 20131031, end: 20131128
  6. RAMIPRIL [Concomitant]
     Dates: start: 20131210, end: 20140107
  7. BECLOMETASONE [Concomitant]
     Dates: start: 20140109

REACTIONS (1)
  - Alanine aminotransferase increased [Not Recovered/Not Resolved]
